FAERS Safety Report 4784133-6 (Version None)
Quarter: 2005Q3

REPORT INFORMATION
  Report Type: 
  Country: None (occurrence: None)
  Receive Date: 20050930
  Receipt Date: 20050714
  Transmission Date: 20060218
  Serious: No
  Sender: FDA-Public Use
  Company Number: US-GLAXOSMITHKLINE-A0566218A

PATIENT
  Sex: Female

DRUGS (7)
  1. FLOVENT [Suspect]
     Indication: ASTHMA
     Dosage: 3PUFF TWICE PER DAY
     Route: 055
     Dates: start: 20050201, end: 20050701
  2. LIPITOR [Concomitant]
  3. THYROID TAB [Concomitant]
  4. MULTI-VITAMIN [Concomitant]
  5. VITAMIN E [Concomitant]
  6. FLU VACCINE [Concomitant]
  7. VITAMIN D [Concomitant]

REACTIONS (1)
  - MYALGIA [None]
